FAERS Safety Report 19250803 (Version 4)
Quarter: 2021Q4

REPORT INFORMATION
  Report Type: Spontaneous
  Country: US (occurrence: US)
  Receive Date: 20210512
  Receipt Date: 20211003
  Transmission Date: 20220303
  Serious: Yes (Death, Hospitalization, Other)
  Sender: FDA-Public Use
  Company Number: US-BRISTOL-MYERS SQUIBB COMPANY-BMS-2021-045734

PATIENT
  Age: 88 Year
  Sex: Female
  Weight: 60 kg

DRUGS (28)
  1. SPRYCEL [Suspect]
     Active Substance: DASATINIB
     Indication: Chronic myeloid leukaemia
     Dosage: 50 MILLIGRAM, QD
     Route: 048
     Dates: start: 201709
  2. ASPIRIN [Concomitant]
     Active Substance: ASPIRIN
     Indication: Product used for unknown indication
     Route: 065
  3. LEVOTHYROXINE [Concomitant]
     Active Substance: LEVOTHYROXINE
     Indication: Product used for unknown indication
     Route: 065
  4. TYLENOL [Concomitant]
     Active Substance: ACETAMINOPHEN
     Indication: Arthritis
     Dosage: 650 MILLIGRAM, TID
     Route: 048
  5. ASPIRIN [Concomitant]
     Active Substance: ASPIRIN
     Indication: Product used for unknown indication
     Dosage: 81 MILLIGRAM DAILY
     Route: 048
  6. BUDESONIDE\FORMOTEROL\GLYCOPYRRONIUM [Concomitant]
     Active Substance: BUDESONIDE\FORMOTEROL\GLYCOPYRRONIUM
     Indication: Product used for unknown indication
     Dosage: INHALE 2 PUFFS TWO TIMES A DAY
     Dates: start: 20201218
  7. COREG [Concomitant]
     Active Substance: CARVEDILOL
     Indication: Product used for unknown indication
     Dosage: 1 TABLET TWO TIMES A DAY
     Route: 048
  8. VITAMIN B12 [Concomitant]
     Active Substance: CYANOCOBALAMIN
     Indication: Product used for unknown indication
     Dosage: 1 TABLET DAILY
     Route: 048
     Dates: start: 20210414
  9. HUMALOG [Concomitant]
     Active Substance: INSULIN LISPRO
     Indication: Product used for unknown indication
     Dosage: INJECT 3 UNITS WITH BREAKFAST AND DINNER ONLY IF  BLOOD SUGAR IS MORE THAN 200 BEFORE THAT MEAL.
     Route: 058
     Dates: start: 20191219
  10. HUMALOG [Concomitant]
     Active Substance: INSULIN LISPRO
     Dosage: INJECT 3 UNITS WITH BREAKFAST AND DINNER ONLY IF  BLOOD SUGAR IS MORE THAN 200 BEFORE THAT MEAL.
     Route: 058
     Dates: start: 20210317
  11. SYNTHROID [Concomitant]
     Active Substance: LEVOTHYROXINE SODIUM
     Indication: Product used for unknown indication
     Dosage: 1 TABLET DAILY
     Route: 048
     Dates: start: 20201204
  12. MELATONIN [Concomitant]
     Active Substance: MELATONIN
     Indication: Product used for unknown indication
     Dosage: 3 MG AT BEDTIME AS NEEDED
     Route: 048
     Dates: start: 20210303
  13. OCUVITE PRESERVISION [ASCORBIC ACID;BETACAROTENE;COPPER;TOCOFERSOLAN;Z [Concomitant]
     Indication: Product used for unknown indication
     Dosage: 1 TABLET DAILY
     Route: 048
     Dates: start: 20141014
  14. NITROSTAT [Concomitant]
     Active Substance: NITROGLYCERIN
     Indication: Product used for unknown indication
     Dosage: PLACE 1 TAB UNDER TONGUE EVERY 5 MINUTES AS NEEDED (PLACE 0.4 MG UNDER THE TONGUE EVERY 5 MINUTES AS
     Route: 060
  15. PERCOCET [Concomitant]
     Active Substance: ACETAMINOPHEN\OXYCODONE HYDROCHLORIDE
     Indication: Pain
     Dosage: TAKE 0.5 TABLETS 4 TIMES DAILY AS NEEDED
     Route: 048
     Dates: start: 20210324
  16. PROTONIX [Concomitant]
     Active Substance: PANTOPRAZOLE SODIUM
     Indication: Product used for unknown indication
     Dosage: TAKE 1 TABLET TWO TIMES A DAY
     Route: 048
     Dates: start: 20210314
  17. GLYCOLAX [Concomitant]
     Active Substance: POLYETHYLENE GLYCOL 3350
     Indication: Product used for unknown indication
     Dosage: TAKE 17 G DAILY AS NEEDED
     Route: 048
     Dates: start: 20210303
  18. DEMADEX [Concomitant]
     Active Substance: TORSEMIDE
     Indication: Joint swelling
     Dosage: 2 TABLETS DAILY AND GIVE EXTRA 20 MG PER DAY FOR THE NEXT THREE DAYS IF INCREASED ANKLE SWELLING
     Route: 065
     Dates: start: 20210414
  19. PROAIR HFA [Concomitant]
     Active Substance: ALBUTEROL SULFATE
     Indication: Product used for unknown indication
     Dosage: INHALE 2 PUFFS EVERY 4 TO 6 HOURS AS NEEDED
     Dates: start: 20210408
  20. PROVENTIL [Concomitant]
     Active Substance: ALBUTEROL
     Indication: Product used for unknown indication
     Dosage: INHALE 2 PUFFS EVERY 4 TO 6 HOURS AS NEEDED
     Dates: start: 20210408
  21. VENTOLIN [Concomitant]
     Active Substance: ALBUTEROL SULFATE
     Indication: Product used for unknown indication
     Dosage: INHALE 2 PUFFS EVERY 4 TO 6 HOURS AS NEEDED
     Dates: start: 20210408
  22. VITAMIN D3 [Concomitant]
     Active Substance: CHOLECALCIFEROL
     Indication: Product used for unknown indication
     Dosage: TAKE 2 CAPSULES BY MOUTH ONCE DAILY. TAKE 50 MCG.
     Route: 048
     Dates: start: 20201029, end: 20210423
  23. CALCIUM CARBONATE [Concomitant]
     Active Substance: CALCIUM CARBONATE
     Indication: Product used for unknown indication
     Dosage: TAKE 600 MY BY MOUTH ONCE DAILY IN THE EVENING,
     Route: 048
     Dates: start: 20201029, end: 20210423
  24. FERROUS SULFATE [Concomitant]
     Active Substance: FERROUS SULFATE
     Indication: Product used for unknown indication
     Dosage: 325 MILLIGRAM, QD
     Route: 048
     Dates: end: 20210423
  25. NOVOLOG [Concomitant]
     Active Substance: INSULIN ASPART
     Indication: Diabetic neuropathy
     Dosage: INJECT 3 UNITS WITH LUNCH
     Route: 058
     Dates: start: 20210303, end: 20210423
  26. NOVOLOG [Concomitant]
     Active Substance: INSULIN ASPART
     Indication: Type 2 diabetes mellitus
     Dosage: INJECT 3 UNITS WITH BREAKFAST
     Route: 058
     Dates: start: 20210303, end: 20210423
  27. NOVOLOG [Concomitant]
     Active Substance: INSULIN ASPART
     Dosage: INJECT 3 UNITS WITH DINNER
     Route: 058
     Dates: start: 20210303, end: 20210423
  28. NOVOLOG [Concomitant]
     Active Substance: INSULIN ASPART
     Dosage: TID WITH MEAL PER BLOOD GLUCOSE
     Route: 058
     Dates: start: 20210303, end: 20210423

REACTIONS (2)
  - Cardiac failure congestive [Fatal]
  - Chronic obstructive pulmonary disease [Unknown]

NARRATIVE: CASE EVENT DATE: 20210205
